FAERS Safety Report 10497587 (Version 2)
Quarter: 2014Q4

REPORT INFORMATION
  Report Type: Spontaneous
  Country: BE (occurrence: BE)
  Receive Date: 20141006
  Receipt Date: 20141024
  Transmission Date: 20150528
  Serious: Yes (Hospitalization, Other)
  Sender: FDA-Public Use
  Company Number: BE-AMGEN-BELSP2014076195

PATIENT
  Age: 102 Year
  Sex: Female

DRUGS (5)
  1. PROLIA [Suspect]
     Active Substance: DENOSUMAB
     Indication: SPINAL COMPRESSION FRACTURE
     Dosage: 60 MG, UNK
     Route: 058
  2. SERESTA [Concomitant]
     Active Substance: OXAZEPAM
     Dosage: 15 MG, 1X1
  3. COVERSYL COMP [Concomitant]
     Active Substance: INDAPAMIDE\PERINDOPRIL
     Dosage: 5 MG, 1X1 IN THE EVENING
  4. AMLOR [Concomitant]
     Active Substance: AMLODIPINE BESYLATE
     Dosage: 10 MG, 1X1 IN THE MORNING
  5. ASAFLOW [Concomitant]
     Active Substance: ASPIRIN
     Dosage: 80 MG, 1X1

REACTIONS (10)
  - Fall [Unknown]
  - Vomiting [Unknown]
  - Blood pressure abnormal [Unknown]
  - Muscle spasticity [Unknown]
  - Arteriosclerosis [Unknown]
  - Cerebrovascular accident [Unknown]
  - Aphasia [Unknown]
  - Blindness [Recovered/Resolved]
  - Cardiac murmur [Unknown]
  - Musculoskeletal stiffness [Unknown]

NARRATIVE: CASE EVENT DATE: 20140604
